FAERS Safety Report 7814318-3 (Version None)
Quarter: 2011Q4

REPORT INFORMATION
  Report Type: 
  Country: None (occurrence: None)
  Receive Date: 20111014
  Receipt Date: 20111006
  Transmission Date: 20120403
  Serious: Yes (Death)
  Sender: FDA-Public Use
  Company Number: JP-GENZYME-THYM-1002756

PATIENT
  Sex: Male
  Weight: 67 kg

DRUGS (5)
  1. THYMOGLOBULIN [Suspect]
     Indication: APLASTIC ANAEMIA
     Dosage: 250 MG, QD
     Route: 042
     Dates: start: 20110907, end: 20110908
  2. CYCLOSPORINE [Concomitant]
     Indication: PRODUCT USED FOR UNKNOWN INDICATION
     Dosage: UNK
     Route: 048
     Dates: start: 20110907, end: 20110910
  3. CORTICOSTEROIDS [Concomitant]
     Indication: PRODUCT USED FOR UNKNOWN INDICATION
     Dosage: UNK
     Route: 065
  4. TACROLIMUS [Concomitant]
     Indication: APLASTIC ANAEMIA
     Dosage: UNK
     Route: 065
     Dates: start: 20110907, end: 20110909
  5. THYMOGLOBULIN [Suspect]
     Dosage: 80 MG, QD
     Route: 042
     Dates: start: 20110909, end: 20110909

REACTIONS (3)
  - RENAL FAILURE [None]
  - RESPIRATORY FAILURE [None]
  - LIVER DISORDER [None]
